FAERS Safety Report 25151631 (Version 1)
Quarter: 2025Q2

REPORT INFORMATION
  Report Type: Spontaneous
  Country: FR (occurrence: FR)
  Receive Date: 20250402
  Receipt Date: 20250402
  Transmission Date: 20250716
  Serious: Yes (Other)
  Sender: JOHNSON AND JOHNSON
  Company Number: None

PATIENT
  Age: 55 Year
  Sex: Female
  Weight: 58.65 kg

DRUGS (1)
  1. RYBREVANT [Suspect]
     Active Substance: AMIVANTAMAB-VMJW
     Indication: Lung cancer metastatic
     Dates: start: 20241009, end: 20250224

REACTIONS (2)
  - Balance disorder [Not Recovered/Not Resolved]
  - Vestibular function test abnormal [Not Recovered/Not Resolved]

NARRATIVE: CASE EVENT DATE: 20241130
